FAERS Safety Report 4639732-9 (Version None)
Quarter: 2005Q2

REPORT INFORMATION
  Report Type: 
  Country: None (occurrence: None)
  Receive Date: 20050328
  Receipt Date: 20050127
  Transmission Date: 20051028
  Serious: No
  Sender: FDA-Public Use
  Company Number: USA050189263

PATIENT
  Age: 10 Year
  Sex: Male
  Weight: 32 kg

DRUGS (5)
  1. STRATTERA [Suspect]
     Dosage: 25 MG DAY
     Dates: start: 20050101
  2. ADDERALL 10 [Concomitant]
  3. RITALIN [Concomitant]
  4. LANTUS [Concomitant]
  5. HUMALOG [Concomitant]

REACTIONS (1)
  - DISTURBANCE IN ATTENTION [None]
